FAERS Safety Report 16863792 (Version 3)
Quarter: 2019Q4

REPORT INFORMATION
  Report Type: Report from Study
  Country: AT (occurrence: AT)
  Receive Date: 20190927
  Receipt Date: 20191025
  Transmission Date: 20200122
  Serious: Yes (Hospitalization, Other)
  Sender: FDA-Public Use
  Company Number: AT-SEATTLE GENETICS-2019SGN03077

PATIENT

DRUGS (22)
  1. BRENTUXIMAB VEDOTIN-MPI [Suspect]
     Active Substance: BRENTUXIMAB VEDOTIN
     Indication: HODGKIN^S DISEASE
     Dosage: 1.8 MILLIGRAM/KILOGRAM
     Route: 065
     Dates: start: 20190807
  2. CYCLOPHOSPHAMIDE. [Suspect]
     Active Substance: CYCLOPHOSPHAMIDE
     Indication: HODGKIN^S DISEASE
     Dosage: 1234 MILLIGRAM/SQ. METER
     Route: 065
     Dates: start: 20190808
  3. DACARBAZINE. [Suspect]
     Active Substance: DACARBAZINE
     Dosage: 251.15 MILLIGRAM/SQ. METER
     Route: 065
     Dates: start: 20191006
  4. PANTOPRAZOL [Concomitant]
     Active Substance: PANTOPRAZOLE SODIUM
     Dosage: 40 MILLIGRAM
     Route: 065
     Dates: start: 20190608
  5. ETOPOSIDE. [Suspect]
     Active Substance: ETOPOSIDE
     Dosage: 151.86 MILLIGRAM/SQ. METER
     Route: 065
     Dates: start: 20191005
  6. METAMIZOLE SODIUM MONOHYDRATE [Concomitant]
     Active Substance: DIPYRONE
     Dosage: UNK
     Route: 065
     Dates: start: 20190807
  7. BRENTUXIMAB VEDOTIN-MPI [Suspect]
     Active Substance: BRENTUXIMAB VEDOTIN
     Dosage: 1.8 MILLIGRAM/KILOGRAM
     Route: 065
     Dates: start: 20190913
  8. DEXAMETHASONE. [Suspect]
     Active Substance: DEXAMETHASONE
     Indication: HODGKIN^S DISEASE
     Dosage: UNK
     Route: 065
  9. DACARBAZINE. [Suspect]
     Active Substance: DACARBAZINE
     Indication: HODGKIN^S DISEASE
     Dosage: 253 MILLIGRAM/SQ. METER
     Route: 065
     Dates: start: 20190809
  10. VALACICLOVIR [Concomitant]
     Active Substance: VALACYCLOVIR HYDROCHLORIDE
     Dosage: 500 MILLIGRAM
     Route: 065
     Dates: start: 20190607
  11. BRENTUXIMAB VEDOTIN-MPI [Suspect]
     Active Substance: BRENTUXIMAB VEDOTIN
     Dosage: 1.8 MILLIGRAM/KILOGRAM
     Route: 065
     Dates: start: 20191004
  12. CYCLOPHOSPHAMIDE. [Suspect]
     Active Substance: CYCLOPHOSPHAMIDE
     Dosage: 1226.53 MILLIGRAM/SQ. METER
     Route: 065
     Dates: start: 20191005
  13. DACARBAZINE. [Suspect]
     Active Substance: DACARBAZINE
     Dosage: 249.55 MILLIGRAM/SQ. METER
     Route: 065
     Dates: start: 20190915
  14. LIDAPRIM                           /00525601/ [Concomitant]
     Active Substance: SULFAMETROLE\TRIMETHOPRIM
     Dosage: UNK
     Route: 065
     Dates: start: 20190607
  15. DEXAMETHASONE. [Suspect]
     Active Substance: DEXAMETHASONE
     Dosage: 160 MILLIGRAM/SQ. METER
     Route: 065
     Dates: start: 20191005
  16. DOXORUBICIN [Suspect]
     Active Substance: DOXORUBICIN
     Dosage: 40 MILLIGRAM/SQ. METER
     Route: 065
     Dates: start: 20190914
  17. DOXORUBICIN [Suspect]
     Active Substance: DOXORUBICIN
     Dosage: 39.72 MILLIGRAM/SQ. METER
     Route: 065
     Dates: start: 20191005
  18. DOXORUBICIN [Suspect]
     Active Substance: DOXORUBICIN
     Indication: HODGKIN^S DISEASE
     Dosage: 40 MILLIGRAM/SQ. METER
     Route: 065
     Dates: start: 20190808
  19. CYCLOPHOSPHAMIDE. [Suspect]
     Active Substance: CYCLOPHOSPHAMIDE
     Dosage: 1276.75 MILLIGRAM/SQ. METER
     Route: 065
     Dates: start: 20190914
  20. ETOPOSIDE. [Suspect]
     Active Substance: ETOPOSIDE
     Indication: HODGKIN^S DISEASE
     Dosage: 153 MILLIGRAM/SQ. METER
     Route: 065
     Dates: start: 20190808
  21. ETOPOSIDE. [Suspect]
     Active Substance: ETOPOSIDE
     Dosage: 150.89 MILLIGRAM/SQ. METER
     Route: 065
     Dates: start: 20190914
  22. DEXAPANTHENOL [Concomitant]
     Active Substance: DEXPANTHENOL
     Dosage: UNK
     Route: 065
     Dates: start: 20190607

REACTIONS (3)
  - Catheter site inflammation [Recovered/Resolved]
  - Bone marrow failure [Recovered/Resolved]
  - Pyrexia [Recovered/Resolved]

NARRATIVE: CASE EVENT DATE: 20190830
